FAERS Safety Report 5463893-5 (Version None)
Quarter: 2007Q3

REPORT INFORMATION
  Report Type: 
  Country: None (occurrence: None)
  Receive Date: 20070814
  Receipt Date: 20061107
  Transmission Date: 20080115
  Serious: Yes (Hospitalization)
  Sender: FDA-Public Use
  Company Number: MEDI-0005112

PATIENT
  Age: 5 Month
  Sex: Male

DRUGS (5)
  1. SYNAGIS [Suspect]
     Indication: ANTIVIRAL PROPHYLAXIS
     Dosage: INTRAMUSCULAR
     Dates: start: 20061030, end: 20061030
  2. ADEX VITAMIN (ERGOCALCIFEROL, ASCORBIC ACID, RETINOL PALMITRATE) [Concomitant]
  3. BACTRIM [Concomitant]
  4. URSODIOL (URSODEOXYCHOLIC ACID) [Concomitant]
  5. ALDACTONE [Concomitant]

REACTIONS (4)
  - DERMATITIS CONTACT [None]
  - DERMATITIS DIAPER [None]
  - JAUNDICE [None]
  - RASH GENERALISED [None]
